FAERS Safety Report 5271047-0 (Version None)
Quarter: 2007Q1

REPORT INFORMATION
  Report Type: 
  Country: None (occurrence: None)
  Receive Date: 20070321
  Receipt Date: 20070312
  Transmission Date: 20070707
  Serious: Yes (Death, Other)
  Sender: FDA-Public Use
  Company Number: PHBS2007NZ04521

PATIENT
  Age: 34 Year
  Sex: Male

DRUGS (5)
  1. WARFARIN SODIUM [Concomitant]
     Indication: ATRIAL FIBRILLATION
     Dosage: 3 MG NOCTE
     Route: 048
  2. METOPROLOL SUCCINATE [Concomitant]
     Indication: HYPERTENSION
     Dosage: 47.5 MG/DAY
     Route: 048
  3. COLOXYL WITH SENNA [Concomitant]
     Indication: CONSTIPATION
     Dosage: NOCTE
     Route: 048
  4. KLEAN PREP [Concomitant]
     Indication: CONSTIPATION
     Dosage: UNKNOWN
     Route: 065
  5. CLOZARIL [Suspect]
     Indication: SCHIZOPHRENIA
     Dosage: UNKNOWN
     Route: 048
     Dates: start: 20020709, end: 20061218

REACTIONS (11)
  - COLONIC PSEUDO-OBSTRUCTION [None]
  - DIARRHOEA [None]
  - DYSPNOEA [None]
  - FATIGUE [None]
  - INFLUENZA LIKE ILLNESS [None]
  - INTESTINAL OBSTRUCTION [None]
  - LETHARGY [None]
  - OEDEMA PERIPHERAL [None]
  - RESPIRATORY ARREST [None]
  - SKIN WARM [None]
  - UNRESPONSIVE TO STIMULI [None]
